FAERS Safety Report 8855195 (Version 1)
Quarter: 2012Q4

REPORT INFORMATION
  Report Type: 
  Country: US (occurrence: US)
  Receive Date: 20121023
  Receipt Date: 20121023
  Transmission Date: 20130627
  Serious: No
  Sender: FDA-Public Use
  Company Number: US-AMGEN-USASP2012059832

PATIENT
  Sex: Female
  Weight: 52 kg

DRUGS (6)
  1. ENBREL [Suspect]
     Indication: PSORIATIC ARTHROPATHY
     Dosage: 50 mg, qwk
     Route: 058
  2. LISINOPRIL [Concomitant]
     Dosage: 40 mg, UNK
  3. TRILIPIX [Concomitant]
     Dosage: 135 mg, UNK
  4. ATORVASTATIN [Concomitant]
     Dosage: 40 mg, UNK
  5. DICLOFENAC [Concomitant]
     Dosage: 75 mg, UNK
  6. VITAMIN D3 [Concomitant]
     Dosage: UNK

REACTIONS (1)
  - Drug ineffective [Unknown]
